FAERS Safety Report 23819962 (Version 1)
Quarter: 2024Q2

REPORT INFORMATION
  Report Type: Spontaneous
  Country: KR (occurrence: KR)
  Receive Date: 20240506
  Receipt Date: 20240506
  Transmission Date: 20240717
  Serious: Yes (Hospitalization)
  Sender: FDA-Public Use
  Company Number: KR-Accord-422593

PATIENT
  Age: 65 Year
  Sex: Male

DRUGS (10)
  1. DEXMEDETOMIDINE HYDROCHLORIDE [Suspect]
     Active Substance: DEXMEDETOMIDINE HYDROCHLORIDE
     Indication: Atrial fibrillation
     Dosage: 1 UG/KG OVER 10 MINUTES ?LOADING DIOSE
  2. ESMOLOL [Concomitant]
     Active Substance: ESMOLOL HYDROCHLORIDE
     Dosage: TWICE
  3. AMIODARONE [Concomitant]
     Active Substance: AMIODARONE
  4. ETOMIDATE [Concomitant]
     Active Substance: ETOMIDATE
     Indication: Anaesthesia
  5. REMIFENTANIL [Concomitant]
     Active Substance: REMIFENTANIL
     Indication: Anaesthesia
     Dosage: 0.1-0.2 UG/KG/MIN
  6. ROCURONIUM BROMIDE [Concomitant]
     Active Substance: ROCURONIUM BROMIDE
  7. SEVOFLURANE [Concomitant]
     Active Substance: SEVOFLURANE
     Indication: Anaesthesia
     Dosage: 1.0-1.5 VOL%
  8. DILTIAZEM [Concomitant]
     Active Substance: DILTIAZEM
     Dosage: 10 MG/HOUR WITH A 10 MG LOADING DOSE
     Route: 042
  9. ESMOLOL [Concomitant]
     Active Substance: ESMOLOL HYDROCHLORIDE
  10. DEXMEDETOMIDINE HYDROCHLORIDE [Suspect]
     Active Substance: DEXMEDETOMIDINE HYDROCHLORIDE
     Indication: Heart rate increased
     Dosage: 0.6 UG/KG/MIN ?MAINTAINANCE DOSE

REACTIONS (1)
  - Delayed recovery from anaesthesia [Recovered/Resolved]
